FAERS Safety Report 13514748 (Version 1)
Quarter: 2017Q2

REPORT INFORMATION
  Report Type: Spontaneous
  Country: DE (occurrence: DE)
  Receive Date: 20170504
  Receipt Date: 20170504
  Transmission Date: 20170830
  Serious: Yes (Hospitalization)
  Sender: FDA-Public Use
  Company Number: DE-TEVA-764757GER

PATIENT
  Age: 67 Year
  Sex: Male

DRUGS (8)
  1. LAMICTAL [Interacting]
     Active Substance: LAMOTRIGINE
     Route: 048
     Dates: end: 20160327
  2. QUILONUM [Concomitant]
     Active Substance: LITHIUM CARBONATE
     Route: 048
  3. TAMSULOSIN HEXAL [Concomitant]
     Route: 048
     Dates: start: 20160327
  4. GASTROZEPIN [Interacting]
     Active Substance: PIRENZEPINE HYDROCHLORIDE
     Route: 048
     Dates: end: 20160327
  5. CLOZAPIN [Suspect]
     Active Substance: CLOZAPINE
     Route: 048
     Dates: start: 20160327
  6. EUTHYROX [Concomitant]
     Active Substance: LEVOTHYROXINE SODIUM
     Route: 048
  7. CLOZAPIN [Suspect]
     Active Substance: CLOZAPINE
     Route: 048
     Dates: end: 20160325
  8. ACETYLSALICYLSAEURE [Concomitant]
     Active Substance: ASPIRIN
     Route: 048

REACTIONS (2)
  - Drug interaction [Unknown]
  - Agranulocytosis [Recovered/Resolved]

NARRATIVE: CASE EVENT DATE: 2016
